FAERS Safety Report 6651725-9 (Version None)
Quarter: 2010Q1

REPORT INFORMATION
  Report Type: 
  Country: None (occurrence: None)
  Receive Date: 20100325
  Receipt Date: 20100322
  Transmission Date: 20100710
  Serious: Yes (Hospitalization, Disabling)
  Sender: FDA-Public Use
  Company Number: US-MERCK-1003USA03572

PATIENT
  Age: 14 Year
  Sex: Male

DRUGS (2)
  1. SINGULAIR [Suspect]
     Indication: HYPERSENSITIVITY
     Route: 048
     Dates: start: 20070301
  2. ZYRTEC [Concomitant]
     Dosage: ON FOR SEVERAL YEARS
     Route: 065

REACTIONS (1)
  - BLOOD URINE [None]
